FAERS Safety Report 5035794-8 (Version None)
Quarter: 2006Q2

REPORT INFORMATION
  Report Type: 
  Country: None (occurrence: None)
  Receive Date: 20060622
  Receipt Date: 20060607
  Transmission Date: 20061013
  Serious: Yes (Death)
  Sender: FDA-Public Use
  Company Number: 2006S1005336

PATIENT
  Age: 62 Year
  Sex: Male

DRUGS (10)
  1. CLOZAPINE [Suspect]
     Indication: SCHIZOAFFECTIVE DISORDER
     Dosage: 25 MG;BID;ORAL
     Route: 048
     Dates: start: 20041117, end: 20060501
  2. CLOZAPINE [Suspect]
     Indication: SCHIZOAFFECTIVE DISORDER
     Dosage: SEE IMAGE
     Route: 048
     Dates: start: 20041117, end: 20060501
  3. VALPROATE SODIUM [Concomitant]
  4. VENLAFAXINE HCL [Concomitant]
  5. IBUPROFEN [Concomitant]
  6. LEVOTHYROXINE SODIUM [Concomitant]
  7. ESOMEPRAZOLE [Concomitant]
  8. PREDNISONE TAB [Concomitant]
  9. ATORVASTATIN CALCIUM [Concomitant]
  10. LISINOPRIL [Concomitant]

REACTIONS (1)
  - CARDIAC DEATH [None]
